FAERS Safety Report 14453906 (Version 5)
Quarter: 2022Q2

REPORT INFORMATION
  Report Type: Report from Study
  Country: MX (occurrence: MX)
  Receive Date: 20180129
  Receipt Date: 20220610
  Transmission Date: 20220720
  Serious: Yes (Death, Hospitalization)
  Sender: FDA-Public Use
  Company Number: MX-JNJFOC-20180134544

PATIENT
  Age: 6 Year
  Sex: Female
  Weight: 17 kg

DRUGS (30)
  1. GOLIMUMAB [Suspect]
     Active Substance: GOLIMUMAB
     Indication: Juvenile idiopathic arthritis
     Dates: start: 20160719, end: 20180102
  2. METHOTREXATE [Concomitant]
     Active Substance: METHOTREXATE
     Dosage: WEEK 1 TO WEEK 76
     Route: 048
  3. FOLIC ACID [Concomitant]
     Active Substance: FOLIC ACID
     Indication: Juvenile idiopathic arthritis
     Route: 048
     Dates: start: 20160209
  4. CHOLECALCIFEROL [Concomitant]
     Active Substance: CHOLECALCIFEROL
     Indication: Juvenile idiopathic arthritis
     Route: 048
     Dates: start: 20160209
  5. NAPROXEN [Concomitant]
     Active Substance: NAPROXEN
     Indication: Juvenile idiopathic arthritis
     Route: 048
     Dates: start: 20160209
  6. PREDNISONE [Concomitant]
     Active Substance: PREDNISONE
     Indication: Juvenile idiopathic arthritis
     Route: 048
     Dates: start: 20160418
  7. AMOXICILLIN\CLAVULANIC ACID [Concomitant]
     Active Substance: AMOXICILLIN\CLAVULANIC ACID
     Indication: Periorbital cellulitis
     Route: 065
     Dates: start: 20180113
  8. CALCIUM\CHOLECALCIFEROL [Concomitant]
     Active Substance: CALCIUM\CHOLECALCIFEROL
  9. BENZONATATO [Concomitant]
  10. OLOPATADINE [Concomitant]
     Active Substance: OLOPATADINE
  11. ACETAMINOPHEN [Concomitant]
     Active Substance: ACETAMINOPHEN
  12. PHENYLEPHRINE [Concomitant]
     Active Substance: PHENYLEPHRINE HYDROCHLORIDE
  13. DOBUTAMINE [Concomitant]
     Active Substance: DOBUTAMINE HYDROCHLORIDE
  14. MIDAZOLAM [Concomitant]
     Active Substance: MIDAZOLAM
  15. FENTANYL [Concomitant]
     Active Substance: FENTANYL
  16. BUPRENORPHINE [Concomitant]
     Active Substance: BUPRENORPHINE
  17. SODIUM CHLORIDE [Concomitant]
     Active Substance: SODIUM CHLORIDE
     Route: 065
  18. EPINEPHRINE [Concomitant]
     Active Substance: EPINEPHRINE
  19. CEFTRIAXONE [Concomitant]
     Active Substance: CEFTRIAXONE
  20. SODIUM PHOSPHATE, MONOBASIC [Concomitant]
     Active Substance: SODIUM PHOSPHATE, MONOBASIC
     Route: 065
  21. CEPHALEXIN [Concomitant]
     Active Substance: CEPHALEXIN
  22. MONTMORILLONITE [Concomitant]
     Active Substance: MONTMORILLONITE
  23. PROBIOTICS NOS [Concomitant]
     Active Substance: PROBIOTICS NOS
  24. OXYGEN [Concomitant]
     Active Substance: OXYGEN
  25. CLINDAMYCIN [Concomitant]
     Active Substance: CLINDAMYCIN
  26. KETOTIFEN [Concomitant]
     Active Substance: KETOTIFEN
  27. CEPHALEXIN [Concomitant]
     Active Substance: CEPHALEXIN
  28. LORATADINE [Concomitant]
     Active Substance: LORATADINE
  29. NASALUB [Concomitant]
  30. WHEY [Concomitant]
     Active Substance: WHEY

REACTIONS (4)
  - Septic shock [Fatal]
  - Constipation [Not Recovered/Not Resolved]
  - Cyanosis [Not Recovered/Not Resolved]
  - Temperature regulation disorder [Not Recovered/Not Resolved]

NARRATIVE: CASE EVENT DATE: 20180116
